FAERS Safety Report 19074450 (Version 1)
Quarter: 2021Q1

REPORT INFORMATION
  Report Type: Other
  Country: GB (occurrence: GB)
  Receive Date: 20210330
  Receipt Date: 20210330
  Transmission Date: 20210420
  Serious: Yes (Life-Threatening, Hospitalization, Other)
  Sender: FDA-Public Use
  Company Number: GB-DEXPHARM-20210379

PATIENT
  Age: 31 Year
  Sex: Female

DRUGS (6)
  1. METFORMIN [Concomitant]
     Active Substance: METFORMIN HYDROCHLORIDE
     Indication: GESTATIONAL DIABETES
  2. IBUPROFEN. [Interacting]
     Active Substance: IBUPROFEN
     Indication: POSTOPERATIVE ANALGESIA
  3. OMEPRAZOLE. [Suspect]
     Active Substance: OMEPRAZOLE
  4. INSULIN [Concomitant]
     Active Substance: INSULIN NOS
     Indication: GESTATIONAL DIABETES
  5. DALTEPARIN [Interacting]
     Active Substance: DALTEPARIN
     Indication: THROMBOSIS PROPHYLAXIS
  6. FORCEVAL [Concomitant]
     Active Substance: FOLIC ACID\IRON\MINERALS\VITAMINS

REACTIONS (3)
  - Drug interaction [Unknown]
  - Anastomotic ulcer [Recovered/Resolved]
  - Haematemesis [Recovered/Resolved]
